FAERS Safety Report 11242548 (Version 1)
Quarter: 2015Q3

REPORT INFORMATION
  Report Type: Spontaneous
  Country: GB (occurrence: None)
  Receive Date: 20150702
  Receipt Date: 20150702
  Transmission Date: 20151125
  Serious: Yes (Disabling)
  Sender: FDA-Public Use
  Company Number: 2015-001320

PATIENT
  Age: 81 Year
  Sex: Male

DRUGS (2)
  1. RISEDRONATE (RISEDRONATE SODIUM) UNKNOWN, UNKUNK [Suspect]
     Active Substance: RISEDRONATE SODIUM
     Indication: OSTEOPOROSIS
     Route: 048
     Dates: end: 201501
  2. DIURETICS [Concomitant]
     Active Substance: UNSPECIFIED INGREDIENT

REACTIONS (1)
  - Pulmonary fibrosis [None]

NARRATIVE: CASE EVENT DATE: 201501
